FAERS Safety Report 5784186-2 (Version None)
Quarter: 2008Q2

REPORT INFORMATION
  Report Type: 
  Country: None (occurrence: None)
  Receive Date: 20080605
  Receipt Date: 20080403
  Transmission Date: 20081010
  Serious: No
  Sender: FDA-Public Use
  Company Number: A0718809A

PATIENT

DRUGS (2)
  1. ALLI [Suspect]
  2. UNSPECIFIED MEDICATION [Concomitant]

REACTIONS (3)
  - CHROMATURIA [None]
  - FAECES DISCOLOURED [None]
  - WEIGHT INCREASED [None]
